FAERS Safety Report 14947183 (Version 7)
Quarter: 2024Q2

REPORT INFORMATION
  Report Type: Report from Study
  Country: US (occurrence: US)
  Receive Date: 20180529
  Receipt Date: 20240628
  Transmission Date: 20240716
  Serious: Yes (Hospitalization, Other)
  Sender: FDA-Public Use
  Company Number: US-JNJFOC-20180530042

PATIENT
  Age: 55 Year
  Sex: Male
  Weight: 96.702 kg

DRUGS (2)
  1. USTEKINUMAB [Suspect]
     Active Substance: USTEKINUMAB
     Indication: Psoriasis
     Route: 058
     Dates: start: 20110920, end: 20140625
  2. COSENTYX [Suspect]
     Active Substance: SECUKINUMAB
     Indication: Product used for unknown indication
     Route: 065
     Dates: start: 201506

REACTIONS (3)
  - Device related infection [Recovered/Resolved]
  - Osteoarthritis [Recovered/Resolved]
  - Shoulder operation [Unknown]

NARRATIVE: CASE EVENT DATE: 20120101
